FAERS Safety Report 7296863-5 (Version None)
Quarter: 2011Q1

REPORT INFORMATION
  Report Type: 
  Country: None (occurrence: None)
  Receive Date: 20110216
  Receipt Date: 20110203
  Transmission Date: 20110831
  Serious: Yes (Other)
  Sender: FDA-Public Use
  Company Number: GXKR2011DE00927

PATIENT
  Sex: Female

DRUGS (1)
  1. UNOFEM [Suspect]
     Indication: UNINTENDED PREGNANCY
     Dosage: 1.5 MG, ONCE/SINGLE
     Route: 048
     Dates: start: 20091009

REACTIONS (35)
  - DEPRESSED MOOD [None]
  - NAUSEA [None]
  - POLYMENORRHOEA [None]
  - DIZZINESS [None]
  - MENSTRUATION IRREGULAR [None]
  - VULVOVAGINAL DISCOMFORT [None]
  - VULVOVAGINAL DRYNESS [None]
  - PERIPHERAL VASCULAR DISORDER [None]
  - GENERAL PHYSICAL CONDITION ABNORMAL [None]
  - SENSORY DISTURBANCE [None]
  - PROGESTERONE DECREASED [None]
  - METRORRHAGIA [None]
  - ABDOMINAL PAIN LOWER [None]
  - ADNEXA UTERI PAIN [None]
  - SLEEP DISORDER [None]
  - HORMONE LEVEL ABNORMAL [None]
  - INFERTILITY FEMALE [None]
  - EMOTIONAL DISORDER [None]
  - ABDOMINAL DISTENSION [None]
  - PARAESTHESIA [None]
  - FEMALE ORGASMIC DISORDER [None]
  - ANXIETY [None]
  - ACTIVITIES OF DAILY LIVING IMPAIRED [None]
  - VOMITING [None]
  - CRYING [None]
  - BURNING SENSATION [None]
  - MENSTRUAL DISORDER [None]
  - AGITATION [None]
  - OESTRADIOL INCREASED [None]
  - DIARRHOEA [None]
  - INSOMNIA [None]
  - HYPOAESTHESIA [None]
  - LUTEAL PHASE DEFICIENCY [None]
  - LIBIDO DECREASED [None]
  - MENORRHAGIA [None]
